FAERS Safety Report 8809656 (Version 1)
Quarter: 2012Q4

REPORT INFORMATION
  Report Type: 
  Country: US (occurrence: US)
  Receive Date: 20120926
  Receipt Date: 20120926
  Transmission Date: 20130627
  Serious: No
  Sender: FDA-Public Use
  Company Number: US-MYLANLABS-2012S1008475

PATIENT
  Sex: Female

DRUGS (35)
  1. FLUOXETINE [Suspect]
  2. IBUPROFEN [Concomitant]
  3. ACETAMINOPHEN [Concomitant]
  4. HYDROCODONE [Concomitant]
     Dosage: Patient reported dose was either 5/500 or 5/325
  5. NEXIUM [Concomitant]
  6. LIPITOR [Concomitant]
     Indication: BLOOD CHOLESTEROL
  7. ALTACE [Concomitant]
  8. SINGULAR [Concomitant]
  9. XOPENEX [Concomitant]
  10. ADVAIR [Concomitant]
  11. LORATADINE [Concomitant]
  12. LORATADINE W/PSEUDOEPHEDRINE [Concomitant]
  13. BACLOFEN [Concomitant]
  14. TRAMADOL [Concomitant]
  15. HYDROCHLOROTHIAZIDE [Concomitant]
  16. ZOLPIDEM [Concomitant]
  17. HYDROXYZINE PAMOATE [Concomitant]
  18. CORTICOSTEROID [Concomitant]
     Dosage: Injections
  19. DOC-Q-LACE [Concomitant]
  20. POLYETHYLENE GLYCOL 3350 [Concomitant]
  21. VITAMIN A [Concomitant]
  22. VITAMIN B COMPLEX [Concomitant]
  23. VITAMIN C [Concomitant]
  24. VITAMIN D [Concomitant]
  25. VITAMIN E [Concomitant]
  26. ZINC [Concomitant]
  27. L-ARGININE /00126101/ [Concomitant]
  28. L-CARNITINE /00878601/ [Concomitant]
  29. MAGNESIUM [Concomitant]
  30. DHEA [Concomitant]
  31. VERAMYST [Concomitant]
  32. PENICILLIN [Concomitant]
  33. LANTUS [Concomitant]
  34. GLIPIZIDE [Concomitant]
     Indication: TYPE 2 DIABETES MELLITUS
  35. GLUCOPHAGE [Concomitant]
     Indication: TYPE 2 DIABETES MELLITUS

REACTIONS (3)
  - Drug ineffective [Recovering/Resolving]
  - Depression [Recovering/Resolving]
  - Apathy [Recovering/Resolving]
